FAERS Safety Report 14038720 (Version 3)
Quarter: 2018Q1

REPORT INFORMATION
  Report Type: Report from Study
  Country: US (occurrence: US)
  Receive Date: 20171004
  Receipt Date: 20180130
  Transmission Date: 20180508
  Serious: Yes (Death, Hospitalization, Other)
  Sender: FDA-Public Use
  Company Number: US-GILEAD-2017-0295775

PATIENT
  Sex: Male

DRUGS (7)
  1. TIKOSYN [Concomitant]
     Active Substance: DOFETILIDE
  2. MATURE MULTIVITAMINS [Concomitant]
  3. MEXILETINE [Concomitant]
     Active Substance: MEXILETINE
  4. FUROSEMIDE. [Concomitant]
     Active Substance: FUROSEMIDE
  5. RANOLAZINE. [Suspect]
     Active Substance: RANOLAZINE
     Indication: VENTRICULAR ARRHYTHMIA
     Route: 065
  6. OMEPRAZOLE. [Concomitant]
     Active Substance: OMEPRAZOLE
  7. COREG [Concomitant]
     Active Substance: CARVEDILOL

REACTIONS (5)
  - Dyspnoea [Unknown]
  - Ventricular tachycardia [Unknown]
  - Sudden cardiac death [Fatal]
  - Major depression [Unknown]
  - Cardiac failure [Unknown]

NARRATIVE: CASE EVENT DATE: 20160814
